FAERS Safety Report 15266104 (Version 1)
Quarter: 2018Q3

REPORT INFORMATION
  Report Type: Spontaneous
  Country: US (occurrence: US)
  Receive Date: 20180724
  Receipt Date: 20180724
  Transmission Date: 20181010
  Serious: Yes (Hospitalization)
  Sender: FDA-Public Use
  Company Number: None

PATIENT
  Age: 58 Year
  Sex: Female

DRUGS (17)
  1. CELECOXIB. [Concomitant]
     Active Substance: CELECOXIB
  2. CLONIDINE. [Concomitant]
     Active Substance: CLONIDINE
  3. IRON [Concomitant]
     Active Substance: IRON
  4. METHOTREXATE. [Concomitant]
     Active Substance: METHOTREXATE
  5. OXYCODONE [Concomitant]
     Active Substance: OXYCODONE
  6. PRAVASTATIN. [Concomitant]
     Active Substance: PRAVASTATIN
  7. AMLODIPINE [Concomitant]
     Active Substance: AMLODIPINE BESYLATE
  8. POT CL MICRO [Concomitant]
  9. IBRANCE [Suspect]
     Active Substance: PALBOCICLIB
     Indication: BREAST CANCER
     Dosage: ?          OTHER FREQUENCY:D FOR 21 DAYS;?
     Route: 048
     Dates: start: 20160215
  10. DICLOFENAC [Concomitant]
     Active Substance: DICLOFENAC
  11. FOLIC ACID. [Concomitant]
     Active Substance: FOLIC ACID
  12. MULTI?VITAMIN [Concomitant]
     Active Substance: .ALPHA.-TOCOPHEROL ACETATE, DL-\ASCORBIC ACID\CYANOCOBALAMIN\FLUORIDE ION\FOLIC ACID\NIACIN\PYRIDOXINE\RIBOFLAVIN\THIAMINE\VITAMIN A\VITAMIN D
  13. OMEPRAZOLE. [Concomitant]
     Active Substance: OMEPRAZOLE
  14. VITAMIN B12 [Concomitant]
     Active Substance: CYANOCOBALAMIN
  15. VITAMIN D [Concomitant]
     Active Substance: CHOLECALCIFEROL
  16. PAXIL [Concomitant]
     Active Substance: PAROXETINE HYDROCHLORIDE
  17. EXEMESTANE. [Concomitant]
     Active Substance: EXEMESTANE

REACTIONS (1)
  - White blood cell count decreased [None]

NARRATIVE: CASE EVENT DATE: 20180623
